FAERS Safety Report 13131320 (Version 2)
Quarter: 2017Q1

REPORT INFORMATION
  Report Type: Report from Study
  Country: PL (occurrence: PL)
  Receive Date: 20170119
  Receipt Date: 20170203
  Transmission Date: 20170428
  Serious: Yes (Life-Threatening, Hospitalization, Disabling)
  Sender: FDA-Public Use
  Company Number: PL-ASTRAZENECA-2016SE06276

PATIENT
  Age: 61 Year
  Sex: Male

DRUGS (11)
  1. FRAGMIN [Concomitant]
     Active Substance: DALTEPARIN SODIUM
     Route: 065
  2. ASPIRIN. [Suspect]
     Active Substance: ASPIRIN
     Indication: ACUTE CORONARY SYNDROME
     Dosage: 75 MG  DAILY (NON-AZ PRODUCT)
     Route: 048
  3. ZOCOR [Concomitant]
     Active Substance: SIMVASTATIN
     Route: 065
  4. NEDAL [Concomitant]
     Route: 065
  5. TICAGRELOR [Suspect]
     Active Substance: TICAGRELOR
     Indication: ACUTE CORONARY SYNDROME
     Route: 048
     Dates: start: 20140413, end: 20150420
  6. TRITACE [Concomitant]
     Active Substance: RAMIPRIL
     Route: 065
  7. CAVINTON [Concomitant]
     Active Substance: VINPOCETINE
     Route: 065
  8. MEMOTROPIL [Concomitant]
     Active Substance: PIRACETAM
     Route: 065
  9. PLASMALYTE [Concomitant]
     Active Substance: ELECTROLYTES NOS
     Route: 065
  10. ACARD [Concomitant]
     Active Substance: ASPIRIN
     Route: 065
  11. BAZETHAM [Concomitant]
     Active Substance: TAMSULOSIN
     Route: 065

REACTIONS (1)
  - Ischaemic stroke [Recovered/Resolved with Sequelae]

NARRATIVE: CASE EVENT DATE: 20151005
